FAERS Safety Report 14755769 (Version 5)
Quarter: 2018Q3

REPORT INFORMATION
  Report Type: Spontaneous
  Country: US (occurrence: US)
  Receive Date: 20180413
  Receipt Date: 20180815
  Transmission Date: 20181010
  Serious: Yes (Other)
  Sender: FDA-Public Use
  Company Number: US-PFIZER INC-2018149031

PATIENT
  Age: 56 Year
  Sex: Female
  Weight: 68.93 kg

DRUGS (2)
  1. IBRANCE [Suspect]
     Active Substance: PALBOCICLIB
     Indication: BREAST CANCER METASTATIC
     Dosage: 100 MG, CYCLIC (ONCE A DAY BY MOUTH BY 21 DAYS)(ONCE EVERY EVENING FOR 21 DAYS)
     Route: 048
     Dates: start: 2018
  2. LETROZOLE. [Concomitant]
     Active Substance: LETROZOLE
     Indication: BREAST CANCER
     Dosage: 2.5 MG, 1X/DAY

REACTIONS (16)
  - Cardiomyopathy [Not Recovered/Not Resolved]
  - Gastrooesophageal reflux disease [Unknown]
  - Bronchitis chronic [Not Recovered/Not Resolved]
  - Headache [Unknown]
  - Dysphagia [Recovering/Resolving]
  - Fatigue [Not Recovered/Not Resolved]
  - Oropharyngeal pain [Recovered/Resolved]
  - Stomatitis [Unknown]
  - Dysphonia [Not Recovered/Not Resolved]
  - Cheilitis [Recovering/Resolving]
  - Full blood count decreased [Recovering/Resolving]
  - Lymphadenopathy [Recovering/Resolving]
  - Oesophagitis [Unknown]
  - Perineal rash [Not Recovered/Not Resolved]
  - Malaise [Unknown]
  - Cough [Not Recovered/Not Resolved]

NARRATIVE: CASE EVENT DATE: 201802
